FAERS Safety Report 9233232 (Version 1)
Quarter: 2013Q2

REPORT INFORMATION
  Report Type: Spontaneous
  Country: US (occurrence: US)
  Receive Date: 20130416
  Receipt Date: 20130416
  Transmission Date: 20140414
  Serious: Yes (Other)
  Sender: FDA-Public Use
  Company Number: US-BANPHARM-20120148

PATIENT
  Age: 32 Year
  Sex: Male
  Weight: 113.63 kg

DRUGS (2)
  1. ALEVE LIQUID GELS 220 MG [Suspect]
     Dosage: 2 DF, USED ONE TIME,
     Route: 048
     Dates: start: 20120902, end: 20120902
  2. HIGH CHOLESTEROL MEDICATION [Concomitant]

REACTIONS (1)
  - Hypersensitivity [Not Recovered/Not Resolved]
